FAERS Safety Report 4591312-X (Version None)
Quarter: 2005Q1

REPORT INFORMATION
  Report Type: 
  Country: None (occurrence: None)
  Receive Date: 20050225
  Receipt Date: 20050218
  Transmission Date: 20050727
  Serious: Yes (Death, Other)
  Sender: FDA-Public Use
  Company Number: PHBS2005DE02571

PATIENT
  Age: 67 Year
  Sex: Male

DRUGS (4)
  1. IMATINIB [Suspect]
     Indication: MYELOPROLIFERATIVE DISORDER
     Dosage: 100 MG/DAY
     Route: 065
  2. IMATINIB [Suspect]
     Dosage: 100 MG EVERY OTHER DAY
     Route: 065
  3. IMATINIB [Suspect]
     Dosage: 200 MG/DAY
     Route: 065
  4. IMATINIB [Suspect]
     Dosage: 400 MG/DAY
     Route: 065

REACTIONS (11)
  - BIOPSY BONE MARROW ABNORMAL [None]
  - BLAST CELL CRISIS [None]
  - CHILLS [None]
  - CHROMOSOME ANALYSIS ABNORMAL [None]
  - DRUG RESISTANCE [None]
  - HAEMOGLOBIN DECREASED [None]
  - NEUTROPENIA [None]
  - NIGHT SWEATS [None]
  - PLEURAL EFFUSION [None]
  - PYREXIA [None]
  - WHITE BLOOD CELL COUNT INCREASED [None]
